FAERS Safety Report 9885885 (Version 1)
Quarter: 2014Q1

REPORT INFORMATION
  Report Type: Spontaneous
  Country: CL (occurrence: CL)
  Receive Date: 20140210
  Receipt Date: 20140210
  Transmission Date: 20141002
  Serious: Yes (Other)
  Sender: FDA-Public Use
  Company Number: CL-PFIZER INC-2014034353

PATIENT
  Age: 71 Year
  Sex: Female

DRUGS (9)
  1. XALACOM [Suspect]
     Indication: GLAUCOMA
     Dosage: 1 DF, 1X/DAY
     Route: 047
     Dates: start: 2007, end: 2012
  2. ALTRULINE [Suspect]
     Indication: MOOD ALTERED
     Dosage: IN THE MORNING, ONCE A DAY
     Route: 048
     Dates: start: 2011
  3. INSULIN [Concomitant]
  4. PLANEX [Concomitant]
     Dosage: 75 MG, UNK
  5. CORDIAX [Concomitant]
     Dosage: 80 MG, 1X/DAY
  6. AMLODIPINE BESILATE [Concomitant]
     Dosage: 5 MG, 2X/DAY
  7. ESPIRONOLACTONA [Concomitant]
     Dosage: 25 MG, 1X/DAY
  8. ALPRAZOLAM [Concomitant]
     Dosage: SOME TIMES
  9. CRONUS [Concomitant]

REACTIONS (6)
  - Angiopathy [Unknown]
  - Arterial disorder [Unknown]
  - Arteriosclerosis [Not Recovered/Not Resolved]
  - Deafness unilateral [Unknown]
  - Eyelid disorder [Not Recovered/Not Resolved]
  - Osteoarthritis [Unknown]
